FAERS Safety Report 5857857-7 (Version None)
Quarter: 2008Q3

REPORT INFORMATION
  Report Type: 
  Country: None (occurrence: None)
  Receive Date: 20080825
  Receipt Date: 20080825
  Transmission Date: 20090109
  Serious: Yes (Death)
  Sender: FDA-Public Use
  Company Number: None

PATIENT
  Age: 46 Year
  Sex: Female
  Weight: 47.6277 kg

DRUGS (2)
  1. EFFEXOR [Suspect]
     Indication: DEPRESSION
     Dosage: 75 MG QD PO
     Route: 048
     Dates: start: 20080804, end: 20080808
  2. LEXAPRO [Suspect]
     Dates: start: 20080703, end: 20080804

REACTIONS (7)
  - ANXIETY [None]
  - COMPLETED SUICIDE [None]
  - DISTURBANCE IN ATTENTION [None]
  - FLIGHT OF IDEAS [None]
  - OBSESSIVE THOUGHTS [None]
  - PARANOIA [None]
  - THINKING ABNORMAL [None]
